FAERS Safety Report 12620961 (Version 4)
Quarter: 2016Q4

REPORT INFORMATION
  Report Type: Spontaneous
  Country: JP (occurrence: JP)
  Receive Date: 20160804
  Receipt Date: 20161212
  Transmission Date: 20170207
  Serious: Yes (Life-Threatening, Hospitalization)
  Sender: FDA-Public Use
  Company Number: PHJP2016JP021845

PATIENT
  Age: 51 Year
  Sex: Female

DRUGS (12)
  1. ACINON//NIZATIDINE [Concomitant]
     Indication: PSORIATIC ARTHROPATHY
  2. COSENTYX [Suspect]
     Active Substance: SECUKINUMAB
     Indication: PSORIATIC ARTHROPATHY
     Dosage: 150 MG, 4W
     Route: 058
     Dates: start: 20160908
  3. MYSER [Concomitant]
     Active Substance: DIFLUPREDNATE
     Indication: PUSTULAR PSORIASIS
     Dosage: UNK
     Route: 065
  4. VASELINE PURE [Concomitant]
     Active Substance: PETROLATUM
     Indication: PUSTULAR PSORIASIS
     Dosage: Q.S.
     Route: 065
  5. RINDERON V [Concomitant]
     Active Substance: BETAMETHASONE VALERATE
     Indication: PUSTULAR PSORIASIS
     Dosage: UNK
     Route: 065
  6. VOLTAREN ^CIBA-GEIGY^ [Concomitant]
     Indication: PUSTULAR PSORIASIS
     Dosage: 37.5 MG, BID
     Route: 048
  7. RINDERON V [Concomitant]
     Active Substance: BETAMETHASONE VALERATE
     Indication: PSORIATIC ARTHROPATHY
  8. ACINON//NIZATIDINE [Concomitant]
     Indication: PUSTULAR PSORIASIS
     Dosage: 75 MG, BID
     Route: 048
  9. COSENTYX [Suspect]
     Active Substance: SECUKINUMAB
     Indication: PSORIASIS
     Dosage: 300 MG, UNK
     Route: 058
     Dates: start: 20160602, end: 20160630
  10. MYSER [Concomitant]
     Active Substance: DIFLUPREDNATE
     Indication: PSORIATIC ARTHROPATHY
     Dosage: UNK
     Route: 065
  11. VASELINE PURE [Concomitant]
     Active Substance: PETROLATUM
     Indication: PSORIATIC ARTHROPATHY
     Dosage: UNK
     Route: 065
  12. VOLTAREN ^CIBA-GEIGY^ [Concomitant]
     Indication: PSORIATIC ARTHROPATHY

REACTIONS (8)
  - Candida infection [Recovered/Resolved]
  - Cellulitis [Recovered/Resolved]
  - Peripheral swelling [Recovered/Resolved]
  - Psoriasis [Unknown]
  - Stomatitis [Recovered/Resolved]
  - Dermatitis [Recovered/Resolved]
  - Erythema [Recovered/Resolved]
  - Incorrect dose administered [Unknown]

NARRATIVE: CASE EVENT DATE: 20160728
